FAERS Safety Report 18258905 (Version 1)
Quarter: 2020Q3

REPORT INFORMATION
  Report Type: Spontaneous
  Country: US (occurrence: US)
  Receive Date: 20200911
  Receipt Date: 20200911
  Transmission Date: 20201103
  Serious: Yes (Other)
  Sender: FDA-Public Use
  Company Number: US-MYLANLABS-2020M1076761

PATIENT
  Sex: Female
  Weight: 128.37 kg

DRUGS (2)
  1. HYDROXYCHLOROQUINE SULFATE TABLETS, USP [Suspect]
     Active Substance: HYDROXYCHLOROQUINE SULFATE
     Indication: RHEUMATOID ARTHRITIS
     Dosage: 200 MILLIGRAM, BID
     Route: 048
  2. METHOTREXATE. [Suspect]
     Active Substance: METHOTREXATE
     Indication: RHEUMATOID ARTHRITIS
     Dosage: SEVEN 2.5MG, TABLETS, BY MOUTH, ONE TIME A WEEK
     Route: 048
     Dates: start: 2012

REACTIONS (1)
  - Drug ineffective [Unknown]
